FAERS Safety Report 5496947-8 (Version None)
Quarter: 2007Q4

REPORT INFORMATION
  Report Type: 
  Country: None (occurrence: None)
  Receive Date: 20071025
  Receipt Date: 20071019
  Transmission Date: 20080405
  Serious: Yes (Hospitalization)
  Sender: FDA-Public Use
  Company Number: B0421357A

PATIENT
  Age: 24 Year
  Sex: Female

DRUGS (2)
  1. FLOLAN [Suspect]
     Indication: PULMONARY THROMBOSIS
     Route: 042
     Dates: start: 20040310
  2. SILDENAFIL CITRATE [Concomitant]
     Route: 048

REACTIONS (3)
  - HYPOPITUITARISM [None]
  - RIGHT VENTRICULAR FAILURE [None]
  - WEIGHT INCREASED [None]
